FAERS Safety Report 7490672-X (Version None)
Quarter: 2011Q2

REPORT INFORMATION
  Report Type: 
  Country: None (occurrence: None)
  Receive Date: 20110517
  Receipt Date: 20110517
  Transmission Date: 20111010
  Serious: Yes (Other)
  Sender: FDA-Public Use
  Company Number: None

PATIENT
  Age: 5 Year
  Sex: Female
  Weight: 16.7831 kg

DRUGS (2)
  1. CEPHALEXIN [Suspect]
     Indication: INFECTED BITES
     Dosage: 5.5ML TID PO
     Route: 048
     Dates: start: 20110509, end: 20110513
  2. CEPHALEXIN [Suspect]
     Indication: ARTHROPOD BITE
     Dosage: 5.5ML TID PO
     Route: 048
     Dates: start: 20110509, end: 20110513

REACTIONS (8)
  - ABDOMINAL PAIN [None]
  - DIARRHOEA [None]
  - BODY TEMPERATURE INCREASED [None]
  - MUSCLE SPASMS [None]
  - NAUSEA [None]
  - MUCOUS STOOLS [None]
  - HAEMATOCHEZIA [None]
  - CLOSTRIDIUM TEST POSITIVE [None]
